FAERS Safety Report 5636224-5 (Version None)
Quarter: 2008Q1

REPORT INFORMATION
  Report Type: 
  Country: None (occurrence: None)
  Receive Date: 20080220
  Receipt Date: 20080220
  Transmission Date: 20080703
  Serious: No
  Sender: FDA-Public Use
  Company Number: None

PATIENT
  Age: 74 Year
  Sex: Female
  Weight: 59 kg

DRUGS (1)
  1. HURRICAINE SPRAY [Suspect]
     Indication: PREOPERATIVE CARE
     Dosage: 2 SPRAYS

REACTIONS (1)
  - METHAEMOGLOBINAEMIA [None]
